FAERS Safety Report 7820520-7 (Version None)
Quarter: 2011Q4

REPORT INFORMATION
  Report Type: 
  Country: None (occurrence: None)
  Receive Date: 20111018
  Receipt Date: 20111017
  Transmission Date: 20120403
  Serious: Yes (Death)
  Sender: FDA-Public Use
  Company Number: DE-B.I. PHARMACEUTICALS,INC./RIDGEFIELD-2011-DE-05810DE

PATIENT
  Sex: Male
  Weight: 80 kg

DRUGS (1)
  1. PRADAXA [Suspect]
     Indication: ATRIAL FIBRILLATION
     Dosage: 300 MG
     Dates: start: 20110916, end: 20111012

REACTIONS (5)
  - DEATH [None]
  - GASTRIC HAEMORRHAGE [None]
  - FALL [None]
  - INTESTINAL HAEMORRHAGE [None]
  - HAEMATOMA [None]
